FAERS Safety Report 7554750-9 (Version None)
Quarter: 2011Q2

REPORT INFORMATION
  Report Type: 
  Country: None (occurrence: None)
  Receive Date: 20110617
  Receipt Date: 20110607
  Transmission Date: 20111010
  Serious: Yes (Other)
  Sender: FDA-Public Use
  Company Number: US-ROCHE-743222

PATIENT
  Sex: Male
  Weight: 81.6 kg

DRUGS (3)
  1. ACCUTANE [Suspect]
     Route: 065
     Dates: start: 19891001, end: 19900101
  2. ACCUTANE [Suspect]
     Route: 065
     Dates: start: 19830901, end: 19831201
  3. ACCUTANE [Suspect]
     Route: 065
     Dates: start: 19960101, end: 19960301

REACTIONS (8)
  - IRRITABLE BOWEL SYNDROME [None]
  - COLITIS ULCERATIVE [None]
  - SUICIDAL IDEATION [None]
  - SUICIDE ATTEMPT [None]
  - GASTROINTESTINAL INJURY [None]
  - MENTAL DISORDER [None]
  - INFLAMMATORY BOWEL DISEASE [None]
  - DEPRESSION [None]
